FAERS Safety Report 19738957 (Version 1)
Quarter: 2021Q3

REPORT INFORMATION
  Report Type: Other
  Country: CN (occurrence: CN)
  Receive Date: 20210824
  Receipt Date: 20210824
  Transmission Date: 20211014
  Serious: Yes (Other)
  Sender: FDA-Public Use
  Company Number: CN-ROCHE-2897263

PATIENT

DRUGS (2)
  1. BEVACIZUMAB. [Suspect]
     Active Substance: BEVACIZUMAB
     Indication: NON-SMALL CELL LUNG CANCER
     Dosage: DAY 1, 21 DAYS WAS A CYCLE FOR A TOTAL OF 4 CYCLES
     Route: 041
  2. GEFITINIB. [Suspect]
     Active Substance: GEFITINIB
     Indication: NON-SMALL CELL LUNG CANCER
     Dosage: 21 DAYS WAS A CYCLE FOR A TOTAL OF 4 CYCLES
     Route: 048

REACTIONS (1)
  - Myelosuppression [Unknown]
